FAERS Safety Report 10516866 (Version 2)
Quarter: 2014Q4

REPORT INFORMATION
  Report Type: Report from Study
  Country: US (occurrence: US)
  Receive Date: 20141014
  Receipt Date: 20141014
  Transmission Date: 20150528
  Serious: Yes (Other)
  Sender: FDA-Public Use
  Company Number: US-SA-2014SA040902

PATIENT
  Age: 61 Year
  Sex: Male
  Weight: 115.6 kg

DRUGS (1)
  1. AUBAGIO [Suspect]
     Active Substance: TERIFLUNOMIDE
     Indication: MULTIPLE SCLEROSIS
     Route: 048
     Dates: start: 20140221

REACTIONS (12)
  - Peroneal nerve palsy [Unknown]
  - Hepatic steatosis [Unknown]
  - Arthralgia [Unknown]
  - Lower respiratory tract infection [Unknown]
  - Headache [Unknown]
  - Nasopharyngitis [Unknown]
  - Impaired work ability [Unknown]
  - Blood glucose abnormal [Unknown]
  - Intervertebral disc protrusion [Unknown]
  - Exostosis [Unknown]
  - Sensory disturbance [Unknown]
  - Influenza [Unknown]

NARRATIVE: CASE EVENT DATE: 201404
